FAERS Safety Report 23682483 (Version 5)
Quarter: 2025Q3

REPORT INFORMATION
  Report Type: Spontaneous
  Country: EU (occurrence: EU)
  Receive Date: 20240328
  Receipt Date: 20250711
  Transmission Date: 20251020
  Serious: Yes (Life-Threatening, Hospitalization, Other)
  Sender: SANDOZ
  Company Number: EU-EMA-DD-20180104-negievprod-160545

PATIENT
  Sex: Female

DRUGS (95)
  1. DIPRIVAN [Suspect]
     Active Substance: PROPOFOL
     Indication: Product used for unknown indication
     Route: 016
  2. DIPRIVAN [Suspect]
     Active Substance: PROPOFOL
     Route: 065
  3. ALLOPURINOL [Suspect]
     Active Substance: ALLOPURINOL
     Indication: Product used for unknown indication
     Route: 065
  4. ALLOPURINOL [Suspect]
     Active Substance: ALLOPURINOL
     Indication: Gout
  5. AMOXICILLIN [Suspect]
     Active Substance: AMOXICILLIN
     Indication: Pneumonia
     Route: 048
  6. AMOXICILLIN [Suspect]
     Active Substance: AMOXICILLIN
     Route: 048
  7. AMOXICILLIN [Suspect]
     Active Substance: AMOXICILLIN
     Route: 048
  8. AMOXICILLIN [Suspect]
     Active Substance: AMOXICILLIN
     Route: 065
  9. AMOXICILLIN TRIHYDRATE [Suspect]
     Active Substance: AMOXICILLIN
     Indication: Pneumonia
     Route: 065
  10. IBUPROFEN SODIUM [Suspect]
     Active Substance: IBUPROFEN SODIUM
     Route: 048
  11. IBUPROFEN SODIUM [Suspect]
     Active Substance: IBUPROFEN SODIUM
     Indication: Product used for unknown indication
     Route: 065
  12. CEFTRIAXONE [Suspect]
     Active Substance: CEFTRIAXONE
     Indication: Pneumonia
     Route: 048
  13. CEFTRIAXONE [Suspect]
     Active Substance: CEFTRIAXONE
     Route: 048
  14. CEFTRIAXONE [Suspect]
     Active Substance: CEFTRIAXONE
     Route: 048
  15. CEFTRIAXONE [Suspect]
     Active Substance: CEFTRIAXONE
     Route: 048
  16. DIAZEPAM [Suspect]
     Active Substance: DIAZEPAM
     Indication: Product used for unknown indication
     Route: 042
  17. DIAZEPAM [Suspect]
     Active Substance: DIAZEPAM
     Route: 042
  18. DIAZEPAM [Suspect]
     Active Substance: DIAZEPAM
     Route: 042
  19. DIAZEPAM [Suspect]
     Active Substance: DIAZEPAM
     Route: 042
  20. FLUCONAZOLE [Suspect]
     Active Substance: FLUCONAZOLE
     Indication: Pneumonia
     Route: 048
  21. FLUCONAZOLE [Suspect]
     Active Substance: FLUCONAZOLE
     Indication: Antifungal treatment
  22. PHENYTOIN [Suspect]
     Active Substance: PHENYTOIN
     Route: 065
  23. PHENYTOIN [Suspect]
     Active Substance: PHENYTOIN
     Indication: Seizure
     Route: 042
  24. GLIQUIDONE [Suspect]
     Active Substance: GLIQUIDONE
     Indication: Product used for unknown indication
     Route: 016
  25. IBUPROFEN [Suspect]
     Active Substance: IBUPROFEN
     Indication: Analgesic therapy
     Route: 048
  26. IBUPROFEN [Suspect]
     Active Substance: IBUPROFEN
     Route: 065
  27. LEVETIRACETAM [Suspect]
     Active Substance: LEVETIRACETAM
     Indication: Partial seizures
     Dosage: 3000 MG, QD
     Route: 042
  28. LEVETIRACETAM [Suspect]
     Active Substance: LEVETIRACETAM
     Indication: Seizure
     Route: 065
  29. LEVETIRACETAM [Suspect]
     Active Substance: LEVETIRACETAM
     Indication: Generalised tonic-clonic seizure
     Route: 042
  30. LEVETIRACETAM [Suspect]
     Active Substance: LEVETIRACETAM
     Indication: Status epilepticus
     Route: 042
  31. METAMIZOLE SODIUM [Suspect]
     Active Substance: METAMIZOLE SODIUM
     Indication: Product used for unknown indication
     Route: 065
  32. METAMIZOLE [Suspect]
     Active Substance: METAMIZOLE
     Indication: Pain
     Route: 048
  33. METAMIZOLE [Suspect]
     Active Substance: METAMIZOLE
     Indication: Product used for unknown indication
  34. ALLOPURINOL [Suspect]
     Active Substance: ALLOPURINOL
     Indication: Product used for unknown indication
     Route: 048
  35. ALLOPURINOL [Suspect]
     Active Substance: ALLOPURINOL
     Route: 048
  36. ALLOPURINOL [Suspect]
     Active Substance: ALLOPURINOL
     Route: 048
  37. ALLOPURINOL [Suspect]
     Active Substance: ALLOPURINOL
     Route: 048
  38. BENZBROMARONE [Suspect]
     Active Substance: BENZBROMARONE
     Indication: Generalised tonic-clonic seizure
     Route: 048
  39. ACETAMINOPHEN [Suspect]
     Active Substance: ACETAMINOPHEN
     Indication: Product used for unknown indication
     Route: 048
  40. ACETAMINOPHEN [Suspect]
     Active Substance: ACETAMINOPHEN
     Indication: Analgesic therapy
     Route: 065
  41. ACETAMINOPHEN [Suspect]
     Active Substance: ACETAMINOPHEN
     Indication: Pain
  42. PHENYTOIN [Suspect]
     Active Substance: PHENYTOIN
     Indication: Status epilepticus
     Route: 065
  43. PHENYTOIN [Suspect]
     Active Substance: PHENYTOIN
     Route: 042
  44. PHENYTOIN [Suspect]
     Active Substance: PHENYTOIN
     Route: 065
  45. PHENYTOIN [Suspect]
     Active Substance: PHENYTOIN
     Route: 065
  46. VALPROATE SODIUM [Suspect]
     Active Substance: VALPROATE SODIUM
     Indication: Generalised tonic-clonic seizure
     Route: 042
  47. VALPROATE SODIUM [Suspect]
     Active Substance: VALPROATE SODIUM
     Route: 048
  48. VALPROATE SODIUM [Suspect]
     Active Substance: VALPROATE SODIUM
     Indication: Seizure
     Route: 065
  49. VALPROATE SODIUM [Suspect]
     Active Substance: VALPROATE SODIUM
     Indication: Status epilepticus
     Route: 065
  50. VALPROATE SODIUM [Suspect]
     Active Substance: VALPROATE SODIUM
     Route: 065
  51. VALPROIC ACID [Suspect]
     Active Substance: VALPROIC ACID
     Indication: Partial seizures
     Route: 016
  52. VALPROIC ACID [Suspect]
     Active Substance: VALPROIC ACID
     Indication: Generalised tonic-clonic seizure
  53. ASPIRIN [Concomitant]
     Active Substance: ASPIRIN
     Indication: Product used for unknown indication
     Route: 065
  54. ALLOPURINOL [Concomitant]
     Active Substance: ALLOPURINOL
     Indication: Product used for unknown indication
     Route: 065
  55. Amoclen [Concomitant]
     Indication: Pneumonia
     Route: 065
  56. AMOXICILLIN [Concomitant]
     Active Substance: AMOXICILLIN
     Indication: Pneumonia
     Route: 065
  57. AMOXICILLIN [Concomitant]
     Active Substance: AMOXICILLIN
     Indication: Pneumonia
     Route: 065
  58. BETAXOLOL [Concomitant]
     Active Substance: BETAXOLOL
     Indication: Hypertension
     Route: 048
  59. BETAXOLOL [Concomitant]
     Active Substance: BETAXOLOL
     Route: 065
  60. Codesal [Concomitant]
     Indication: Partial seizures
     Route: 048
  61. Cynt [Concomitant]
     Indication: Hypertension
     Route: 048
  62. DIAZEPAM [Concomitant]
     Active Substance: DIAZEPAM
     Route: 042
  63. DIAZEPAM [Concomitant]
     Active Substance: DIAZEPAM
     Indication: Generalised tonic-clonic seizure
     Route: 065
  64. DIAZEPAM [Concomitant]
     Active Substance: DIAZEPAM
     Route: 065
  65. EUTHYROX [Concomitant]
     Active Substance: LEVOTHYROXINE SODIUM
     Indication: Product used for unknown indication
     Route: 048
  66. EUTHYROX [Concomitant]
     Active Substance: LEVOTHYROXINE SODIUM
     Route: 048
  67. EUTHYROX [Concomitant]
     Active Substance: LEVOTHYROXINE SODIUM
     Route: 048
  68. EUTHYROX [Concomitant]
     Active Substance: LEVOTHYROXINE SODIUM
     Route: 048
  69. GLIQUIDONE [Concomitant]
     Active Substance: GLIQUIDONE
     Indication: Product used for unknown indication
     Route: 065
  70. GLIQUIDONE [Concomitant]
     Active Substance: GLIQUIDONE
     Indication: Product used for unknown indication
     Route: 016
  71. GLIQUIDONE [Concomitant]
     Active Substance: GLIQUIDONE
     Route: 048
  72. GLIQUIDONE [Concomitant]
     Active Substance: GLIQUIDONE
     Indication: Product used for unknown indication
     Route: 048
  73. GLYCINE [Concomitant]
     Active Substance: GLYCINE
     Indication: Product used for unknown indication
     Route: 065
  74. ASPIRIN\GLYCINE [Concomitant]
     Active Substance: ASPIRIN\GLYCINE
     Indication: Product used for unknown indication
     Route: 016
  75. ASPIRIN\GLYCINE [Concomitant]
     Active Substance: ASPIRIN\GLYCINE
     Route: 048
  76. ASPIRIN\GLYCINE [Concomitant]
     Active Substance: ASPIRIN\GLYCINE
     Route: 048
  77. ASPIRIN\GLYCINE [Concomitant]
     Active Substance: ASPIRIN\GLYCINE
     Route: 048
  78. LERCANIDIPINE HYDROCHLORIDE [Concomitant]
     Active Substance: LERCANIDIPINE HYDROCHLORIDE
     Indication: Product used for unknown indication
     Route: 016
  79. LERCANIDIPINE HYDROCHLORIDE [Concomitant]
     Active Substance: LERCANIDIPINE HYDROCHLORIDE
     Route: 048
  80. KEPPRA [Concomitant]
     Active Substance: LEVETIRACETAM
     Indication: Product used for unknown indication
     Route: 065
  81. LERCANIDIPINE [Concomitant]
     Active Substance: LERCANIDIPINE
     Indication: Product used for unknown indication
     Route: 065
  82. BETAXOLOL HYDROCHLORIDE [Concomitant]
     Active Substance: BETAXOLOL HYDROCHLORIDE
     Indication: Product used for unknown indication
     Route: 016
  83. BETAXOLOL HYDROCHLORIDE [Concomitant]
     Active Substance: BETAXOLOL HYDROCHLORIDE
     Route: 048
  84. BETAXOLOL HYDROCHLORIDE [Concomitant]
     Active Substance: BETAXOLOL HYDROCHLORIDE
     Route: 048
  85. BETAXOLOL HYDROCHLORIDE [Concomitant]
     Active Substance: BETAXOLOL HYDROCHLORIDE
     Route: 048
  86. MOXONIDINE [Concomitant]
     Active Substance: MOXONIDINE
     Indication: Product used for unknown indication
     Route: 048
  87. PROPOFOL [Concomitant]
     Active Substance: PROPOFOL
     Indication: Product used for unknown indication
     Route: 065
  88. RAMIPRIL [Concomitant]
     Active Substance: RAMIPRIL
     Indication: Product used for unknown indication
     Route: 048
  89. SIMVASTATIN [Concomitant]
     Active Substance: SIMVASTATIN
     Indication: Product used for unknown indication
     Route: 016
  90. RAMIPRIL [Concomitant]
     Active Substance: RAMIPRIL
     Indication: Hypertension
     Route: 048
  91. RAMIPRIL [Concomitant]
     Active Substance: RAMIPRIL
     Route: 048
  92. RAMIPRIL [Concomitant]
     Active Substance: RAMIPRIL
     Route: 048
  93. RAMIPRIL [Concomitant]
     Active Substance: RAMIPRIL
     Route: 048
  94. SIMVASTATIN [Concomitant]
     Active Substance: SIMVASTATIN
     Route: 016
  95. SIMVASTATIN [Concomitant]
     Active Substance: SIMVASTATIN
     Indication: Hypercholesterolaemia
     Route: 048

REACTIONS (10)
  - Status epilepticus [Recovering/Resolving]
  - Pneumonia [Recovering/Resolving]
  - Skin laceration [Recovered/Resolved with Sequelae]
  - Stevens-Johnson syndrome [Recovered/Resolved]
  - Depressed level of consciousness [Recovering/Resolving]
  - Rash [Recovered/Resolved with Sequelae]
  - Sopor [Recovering/Resolving]
  - Skin laceration [Recovered/Resolved with Sequelae]
  - Drug ineffective [Recovering/Resolving]
  - Therapeutic product effect incomplete [Unknown]
